FAERS Safety Report 9856431 (Version 2)
Quarter: 2014Q1

REPORT INFORMATION
  Report Type: Not Available
  Country: US (occurrence: US)
  Receive Date: 20140130
  Receipt Date: 20140203
  Transmission Date: 20141002
  Serious: Yes (Hospitalization)
  Sender: FDA-Public Use
  Company Number: US-ONYX-2014-0221

PATIENT
  Age: 48 Year
  Sex: Male

DRUGS (1)
  1. KYPROLIS [Suspect]
     Indication: PLASMA CELL MYELOMA
     Route: 042
     Dates: start: 201303

REACTIONS (4)
  - H1N1 influenza [Unknown]
  - Pneumonia [Unknown]
  - Dehydration [Unknown]
  - Head injury [Recovered/Resolved]
